FAERS Safety Report 7875332-5 (Version None)
Quarter: 2011Q4

REPORT INFORMATION
  Report Type: 
  Country: None (occurrence: None)
  Receive Date: 20111031
  Receipt Date: 20111019
  Transmission Date: 20120403
  Serious: Yes (Other)
  Sender: FDA-Public Use
  Company Number: US-GLAXOSMITHKLINE-A0771658A

PATIENT
  Age: 58 Year
  Sex: Female
  Weight: 107.7 kg

DRUGS (8)
  1. INSULIN [Concomitant]
  2. GLUCOPHAGE [Concomitant]
  3. METFORMIN HCL [Concomitant]
  4. AUGMENTIN '125' [Concomitant]
  5. AVANDAMET [Suspect]
     Indication: DIABETES MELLITUS
     Route: 048
     Dates: start: 20041209, end: 20051001
  6. GLUCOTROL XL [Concomitant]
  7. NEXIUM [Concomitant]
  8. GLYBURIDE [Concomitant]

REACTIONS (1)
  - MYOCARDIAL INFARCTION [None]
